FAERS Safety Report 10308592 (Version 3)
Quarter: 2015Q1

REPORT INFORMATION
  Report Type: Report from Study
  Country: JP (occurrence: JP)
  Receive Date: 20140716
  Receipt Date: 20150217
  Transmission Date: 20150720
  Serious: No
  Sender: FDA-Public Use
  Company Number: JP-GLAXOSMITHKLINE-B0881556A

PATIENT
  Age: 85 Year
  Sex: Male

DRUGS (25)
  1. GASTER [Concomitant]
     Active Substance: FAMOTIDINE
     Route: 048
  2. FERROMIA [Concomitant]
     Active Substance: FERROUS CITRATE
     Route: 048
     Dates: end: 20110823
  3. ELTROMBOPAG [Suspect]
     Active Substance: ELTROMBOPAG
     Indication: IMMUNE THROMBOCYTOPENIC PURPURA
     Route: 048
     Dates: start: 20110331, end: 20110412
  4. ELTROMBOPAG [Suspect]
     Active Substance: ELTROMBOPAG
     Dosage: 12.5 MG, QOD
     Route: 048
     Dates: start: 20110713, end: 20110727
  5. ELTROMBOPAG [Suspect]
     Active Substance: ELTROMBOPAG
     Dosage: 12.5 MG, QOD
     Route: 048
     Dates: start: 20110812, end: 20110823
  6. PREDONINE [Suspect]
     Active Substance: PREDNISOLONE\PREDNISOLONE ACETATE\PREDNISOLONE SODIUM SUCCINATE
     Indication: IMMUNE THROMBOCYTOPENIC PURPURA
     Route: 048
     Dates: start: 20110418, end: 20110619
  7. MAGNESIUM OXIDE. [Concomitant]
     Active Substance: MAGNESIUM OXIDE
     Route: 048
  8. ELTROMBOPAG [Suspect]
     Active Substance: ELTROMBOPAG
     Route: 048
     Dates: start: 20110516, end: 20110522
  9. PREDONINE [Suspect]
     Active Substance: PREDNISOLONE\PREDNISOLONE ACETATE\PREDNISOLONE SODIUM SUCCINATE
     Route: 048
     Dates: start: 20110620, end: 20110712
  10. HALFDIGOXIN [Concomitant]
     Active Substance: DIGOXIN
     Route: 048
     Dates: end: 20110823
  11. MUCOSOLVAN L [Concomitant]
     Active Substance: AMBROXOL HYDROCHLORIDE
     Route: 048
     Dates: end: 20110823
  12. ELTROMBOPAG [Suspect]
     Active Substance: ELTROMBOPAG
     Route: 048
     Dates: start: 20110523, end: 20110712
  13. ASPARA POTASSIUM [Concomitant]
     Active Substance: POTASSIUM ASPARTATE
     Indication: PROPHYLAXIS
     Route: 048
  14. FUROSEMIDE. [Concomitant]
     Active Substance: FUROSEMIDE
     Route: 048
     Dates: end: 20110823
  15. TAKEPRON [Concomitant]
     Active Substance: LANSOPRAZOLE
     Route: 048
     Dates: end: 20110823
  16. ELTROMBOPAG [Suspect]
     Active Substance: ELTROMBOPAG
     Route: 048
     Dates: start: 20110425, end: 20110515
  17. CALONAL [Concomitant]
     Active Substance: ACETAMINOPHEN
     Indication: PAIN
     Route: 048
  18. CELECOX [Concomitant]
     Active Substance: CELECOXIB
     Route: 048
     Dates: end: 20110823
  19. MUCODYNE [Concomitant]
     Active Substance: CARBOCYSTEINE
     Route: 048
     Dates: end: 20110823
  20. AZACTAM [Concomitant]
     Active Substance: AZTREONAM
     Route: 051
     Dates: start: 20110727, end: 20110803
  21. ELTROMBOPAG [Suspect]
     Active Substance: ELTROMBOPAG
     Route: 048
     Dates: start: 20110413, end: 20110424
  22. PREDONINE [Suspect]
     Active Substance: PREDNISOLONE\PREDNISOLONE ACETATE\PREDNISOLONE SODIUM SUCCINATE
     Route: 048
     Dates: start: 20110713, end: 20110726
  23. PREDONINE [Suspect]
     Active Substance: PREDNISOLONE\PREDNISOLONE ACETATE\PREDNISOLONE SODIUM SUCCINATE
     Indication: IMMUNE THROMBOCYTOPENIC PURPURA
     Dosage: 5 MG, UNK
     Route: 042
     Dates: start: 20110727, end: 20111004
  24. MAGNESIUM OXIDE. [Concomitant]
     Active Substance: MAGNESIUM OXIDE
     Route: 048
     Dates: end: 20110823
  25. AMIKACIN SULPHATE [Concomitant]
     Route: 051
     Dates: start: 20110727, end: 20110802

REACTIONS (4)
  - Nausea [Recovering/Resolving]
  - Infection [Unknown]
  - Abdominal discomfort [Recovering/Resolving]
  - Decreased appetite [Recovering/Resolving]

NARRATIVE: CASE EVENT DATE: 20110413
